FAERS Safety Report 5679734-7 (Version None)
Quarter: 2008Q1

REPORT INFORMATION
  Report Type: 
  Country: None (occurrence: None)
  Receive Date: 20080321
  Receipt Date: 20080304
  Transmission Date: 20080703
  Serious: Yes (Hospitalization)
  Sender: FDA-Public Use
  Company Number: 2008BI005872

PATIENT
  Sex: Female

DRUGS (5)
  1. AVONEX [Suspect]
     Indication: MULTIPLE SCLEROSIS
     Dosage: QW;IM
     Route: 030
     Dates: start: 20030218
  2. TEGRETOL [Concomitant]
  3. NEURONTIN [Concomitant]
  4. LODINE [Concomitant]
  5. AMITRIPTYLINE HCL [Concomitant]

REACTIONS (7)
  - BACK PAIN [None]
  - DEHYDRATION [None]
  - DEPRESSION [None]
  - DISEASE RECURRENCE [None]
  - DRUG DOSE OMISSION [None]
  - INFECTION [None]
  - LOSS OF CONSCIOUSNESS [None]
